FAERS Safety Report 25505600 (Version 1)
Quarter: 2025Q3

REPORT INFORMATION
  Report Type: Spontaneous
  Country: US (occurrence: None)
  Receive Date: 20250702
  Receipt Date: 20250702
  Transmission Date: 20251020
  Serious: No
  Sender: FDA-CTU
  Company Number: None

PATIENT
  Age: 43 Year
  Sex: Female
  Weight: 101.2 kg

DRUGS (1)
  1. CICLOPIROX [Suspect]
     Active Substance: CICLOPIROX
     Indication: Seborrhoeic dermatitis
     Dates: start: 20250630, end: 20250630

REACTIONS (4)
  - Skin burning sensation [None]
  - Erythema [None]
  - Skin irritation [None]
  - Alopecia [None]

NARRATIVE: CASE EVENT DATE: 20250630
